FAERS Safety Report 14747533 (Version 1)
Quarter: 2018Q2

REPORT INFORMATION
  Report Type: Spontaneous
  Country: US (occurrence: US)
  Receive Date: 20180411
  Receipt Date: 20180411
  Transmission Date: 20180711
  Serious: No
  Sender: FDA-Public Use
  Company Number: US-TEVA-2018-US-879571

PATIENT
  Sex: Male

DRUGS (1)
  1. MUPIROCIN. [Suspect]
     Active Substance: MUPIROCIN
     Indication: STAPHYLOCOCCAL INFECTION
     Route: 065
     Dates: start: 20180402

REACTIONS (3)
  - Nausea [Unknown]
  - Drug prescribing error [Unknown]
  - Hot flush [Unknown]

NARRATIVE: CASE EVENT DATE: 20180402
